FAERS Safety Report 4667414-6 (Version None)
Quarter: 2005Q2

REPORT INFORMATION
  Report Type: 
  Country: None (occurrence: None)
  Receive Date: 20050428
  Receipt Date: 20041221
  Transmission Date: 20051028
  Serious: Yes (Other)
  Sender: FDA-Public Use
  Company Number: US-JNJFOC-20041007788

PATIENT
  Age: 34 Year
  Sex: Female

DRUGS (3)
  1. IMODIUM A-D [Suspect]
     Indication: DIARRHOEA
     Dosage: 4 MG, 1 IN 1 TOTAL, ORAL
     Route: 048
     Dates: start: 20040618, end: 20040618
  2. IBUPROFEN [Concomitant]
  3. TYLENOL [Concomitant]

REACTIONS (7)
  - ABDOMINAL PAIN UPPER [None]
  - ANAPHYLACTIC SHOCK [None]
  - DIZZINESS [None]
  - DYSSTASIA [None]
  - PANIC ATTACK [None]
  - PARAESTHESIA [None]
  - PERIPHERAL COLDNESS [None]
